FAERS Safety Report 5523393-0 (Version None)
Quarter: 2007Q4

REPORT INFORMATION
  Report Type: 
  Country: None (occurrence: None)
  Receive Date: 20071121
  Receipt Date: 20071112
  Transmission Date: 20080405
  Serious: Yes (Death)
  Sender: FDA-Public Use
  Company Number: PF-TYCO HEALTHCARE/MALLINCKRODT-T200701403

PATIENT

DRUGS (5)
  1. HYDROCODONE BITARTRATE AND ACETAMINOPHEN [Suspect]
  2. HYDROCODONE BITARTRATE + ACETAMINOPHEN [Suspect]
  3. GABAPENTIN [Suspect]
  4. AMBIEN [Suspect]
     Indication: INSOMNIA
     Dosage: 1 HS, EVERY 3RD NIGHT
     Route: 048
  5. SEDOL [Concomitant]
     Indication: SLEEP DISORDER

REACTIONS (3)
  - CARDIAC FAILURE [None]
  - HYPERTHERMIA MALIGNANT [None]
  - NERVOUS SYSTEM DISORDER [None]
